FAERS Safety Report 11638269 (Version 1)
Quarter: 2015Q4

REPORT INFORMATION
  Report Type: Spontaneous
  Country: NO (occurrence: NO)
  Receive Date: 20151016
  Receipt Date: 20151016
  Transmission Date: 20160304
  Serious: Yes (Death, Other)
  Sender: FDA-Public Use
  Company Number: NO-ASTRAZENECA-2015SE96048

PATIENT
  Age: 68 Year
  Sex: Female

DRUGS (10)
  1. ORFIRIL [Concomitant]
     Active Substance: VALPROIC ACID
     Indication: DEPRESSION
     Route: 048
  2. PARACET [Concomitant]
     Active Substance: ACETAMINOPHEN
  3. BRILIQUE [Suspect]
     Active Substance: TICAGRELOR
     Indication: ACUTE CORONARY SYNDROME
     Dosage: 20150812: SINGLE BOLUS DOSE 180 MG + 20150813: 90 MG ONCE
     Route: 048
     Dates: start: 20150812, end: 20150813
  4. KLEXANE [Interacting]
     Active Substance: ENOXAPARIN
     Indication: ACUTE CORONARY SYNDROME
     Dosage: 20150812: 80 MG + 20150813: 60 MG
     Route: 065
     Dates: start: 20150812, end: 20150813
  5. AFIPRAN [Concomitant]
  6. MORFIN [Concomitant]
     Active Substance: MORPHINE SULFATE
  7. ACETYLSALICYLIC ACID [Interacting]
     Active Substance: ASPIRIN
     Indication: ACUTE CORONARY SYNDROME
     Dosage: ALBYL-E, 300 MG, UNKNOWN (SINGLE BOLUS DOSE)
     Route: 065
  8. NITROGLYCERIN NYCOMED [Concomitant]
     Dosage: 0,4 MG + 10 ML/T
  9. NARDIL [Concomitant]
     Active Substance: PHENELZINE SULFATE
     Indication: DEPRESSION
     Route: 048
  10. ACETYLSALICYLIC ACID [Interacting]
     Active Substance: ASPIRIN
     Indication: ACUTE CORONARY SYNDROME
     Dosage: 20150812: 300 MG, UNKNOWN (SINGLE BOLUS DOSE)
     Route: 065
     Dates: start: 20150812, end: 20150812

REACTIONS (3)
  - Subarachnoid haemorrhage [Fatal]
  - Spinal cord haemorrhage [Fatal]
  - Drug interaction [Fatal]

NARRATIVE: CASE EVENT DATE: 20150813
